FAERS Safety Report 5511520-0 (Version None)
Quarter: 2007Q4

REPORT INFORMATION
  Report Type: 
  Country: None (occurrence: None)
  Receive Date: 20071109
  Receipt Date: 20071107
  Transmission Date: 20080405
  Serious: Yes (Hospitalization)
  Sender: FDA-Public Use
  Company Number: B0494229A

PATIENT
  Age: 55 Year
  Sex: Female

DRUGS (7)
  1. ROSIGLITAZONE [Suspect]
     Dosage: 4MG PER DAY
     Route: 048
     Dates: start: 20070320, end: 20070917
  2. COMBIVENT [Concomitant]
     Indication: CHRONIC OBSTRUCTIVE PULMONARY DISEASE
     Route: 055
  3. CAMCOLIT [Concomitant]
     Dosage: 1G PER DAY
     Route: 048
     Dates: start: 19960101
  4. DOXAZOSIN MESYLATE [Concomitant]
     Indication: HYPERTENSION
     Dosage: 2MG PER DAY
     Route: 048
     Dates: start: 20060401
  5. METFORMIN HCL [Concomitant]
     Dosage: 2G PER DAY
     Route: 048
     Dates: start: 20060701
  6. SIMVASTATIN [Concomitant]
     Dosage: 20MG PER DAY
     Route: 048
     Dates: start: 20061001
  7. GLICLAZIDE [Concomitant]
     Dosage: 320MG PER DAY
     Dates: start: 20020101

REACTIONS (3)
  - CARDIAC FAILURE CONGESTIVE [None]
  - OEDEMA [None]
  - RESPIRATORY FAILURE [None]
